FAERS Safety Report 10504636 (Version 1)
Quarter: 2014Q4

REPORT INFORMATION
  Report Type: Spontaneous
  Country: JP (occurrence: None)
  Receive Date: 20141006
  Receipt Date: 20141006
  Transmission Date: 20150528
  Serious: Yes (Hospitalization)
  Sender: FDA-Public Use
  Company Number: 2014SCAL000141

PATIENT
  Age: 70 Year
  Sex: Male
  Weight: 62 kg

DRUGS (1)
  1. LITHIUM CARBONATE. [Suspect]
     Active Substance: LITHIUM CARBONATE
     Indication: BIPOLAR DISORDER

REACTIONS (12)
  - Dyspnoea exertional [None]
  - Toxicity to various agents [None]
  - Cardiac tamponade [None]
  - Pleural effusion [None]
  - Hypothyroidism [None]
  - Normochromic normocytic anaemia [None]
  - Oedema peripheral [None]
  - Autoimmune thyroiditis [None]
  - Oedema [None]
  - Face oedema [None]
  - Pericardial effusion [None]
  - Cardiomegaly [None]
